FAERS Safety Report 25719088 (Version 4)
Quarter: 2025Q3

REPORT INFORMATION
  Report Type: Spontaneous
  Country: US (occurrence: US)
  Receive Date: 20250823
  Receipt Date: 20250919
  Transmission Date: 20251020
  Serious: No
  Sender: SANOFI AVENTIS
  Company Number: US-SA-2025SA220892

PATIENT
  Age: 39 Year
  Sex: Male
  Weight: 129.09 kg

DRUGS (7)
  1. DUPIXENT [Suspect]
     Active Substance: DUPILUMAB
     Indication: Asthma
     Dosage: 300 MG, QOW
     Route: 058
     Dates: start: 202211
  2. DUPIXENT [Suspect]
     Active Substance: DUPILUMAB
     Indication: Dermatitis atopic
  3. DUPIXENT [Suspect]
     Active Substance: DUPILUMAB
     Indication: Eczema
  4. ALBUTEROL SULFATE [Concomitant]
     Active Substance: ALBUTEROL SULFATE
  5. FLUTICASONE PROPIONATE [Concomitant]
     Active Substance: FLUTICASONE PROPIONATE
  6. OLOPATADINE [Concomitant]
     Active Substance: OLOPATADINE
  7. FEXOFENADINE [Concomitant]
     Active Substance: FEXOFENADINE HYDROCHLORIDE

REACTIONS (10)
  - Discomfort [Unknown]
  - Eczema [Unknown]
  - Eye pruritus [Unknown]
  - Rash [Not Recovered/Not Resolved]
  - Asthma [Unknown]
  - Conjunctivitis allergic [Unknown]
  - Ocular hyperaemia [Unknown]
  - Lacrimation increased [Unknown]
  - Rash [Unknown]
  - Product dose omission in error [Unknown]

NARRATIVE: CASE EVENT DATE: 20240101
